FAERS Safety Report 8294842-2 (Version None)
Quarter: 2012Q2

REPORT INFORMATION
  Report Type: 
  Country: None (occurrence: None)
  Receive Date: 20120418
  Receipt Date: 20120410
  Transmission Date: 20120825
  Serious: Yes (Other)
  Sender: FDA-Public Use
  Company Number: US-AMGEN-QUU421300

PATIENT
  Sex: Female

DRUGS (5)
  1. LEVOTHYROXINE SODIUM [Concomitant]
     Dosage: UNK UNK, UNK
  2. ERGOCALCIFEROL [Concomitant]
     Dosage: 50000 UNIT, QWK
     Dates: start: 20091101
  3. SENSIPAR [Suspect]
     Indication: HYPERPARATHYROIDISM SECONDARY
     Dosage: 30 MG, QD
     Dates: start: 20090615, end: 20100101
  4. TERAZOSIN HCL [Concomitant]
     Dosage: UNK UNK, UNK
  5. DOCUSATE SODIUM [Concomitant]
     Dosage: UNK UNK, UNK

REACTIONS (7)
  - ARTHRALGIA [None]
  - MUSCLE SPASMS [None]
  - TRIGGER FINGER [None]
  - JOINT SWELLING [None]
  - LETHARGY [None]
  - MUSCULAR WEAKNESS [None]
  - HYPOAESTHESIA [None]
